FAERS Safety Report 8008136-3 (Version None)
Quarter: 2011Q4

REPORT INFORMATION
  Report Type: 
  Country: None (occurrence: None)
  Receive Date: 20111227
  Receipt Date: 20111213
  Transmission Date: 20120403
  Serious: Yes (Disabling)
  Sender: FDA-Public Use
  Company Number: PHHY2011FR102190

PATIENT
  Sex: Male
  Weight: 80 kg

DRUGS (2)
  1. ESCITALOPRAM [Concomitant]
     Dosage: 10 MG, QD
  2. CLOZAPINE [Suspect]
     Indication: SCHIZOPHRENIA
     Dosage: 200 MG, DAILY
     Dates: start: 20060101

REACTIONS (1)
  - GINGIVAL HYPOPLASIA [None]
